FAERS Safety Report 4649847-7 (Version None)
Quarter: 2005Q2

REPORT INFORMATION
  Report Type: 
  Country: None (occurrence: None)
  Receive Date: 20050502
  Receipt Date: 20050208
  Transmission Date: 20051028
  Serious: Yes (Death)
  Sender: FDA-Public Use
  Company Number: PHNU2005DE00871

PATIENT
  Sex: Male

DRUGS (2)
  1. DIOVAN [Suspect]
     Indication: HYPERTENSION
     Dosage: 80 MG, QD
     Route: 048
     Dates: start: 20050101
  2. ACETYL SALICYLIC ACID USP BAT [Concomitant]
     Dosage: UNK, PRN

REACTIONS (2)
  - BACK PAIN [None]
  - MYOCARDIAL INFARCTION [None]
